FAERS Safety Report 9073508 (Version 1)
Quarter: 2013Q1

REPORT INFORMATION
  Report Type: Report from Study
  Country: US (occurrence: US)
  Receive Date: 20130129
  Receipt Date: 20130129
  Transmission Date: 20140127
  Serious: No
  Sender: FDA-Public Use
  Company Number: US-ABBOTT-12P-163-0937508-00

PATIENT
  Age: 23 Year
  Sex: Male

DRUGS (2)
  1. HUMIRA 40 MG/0.8 ML PEN [Suspect]
     Indication: PSORIATIC ARTHROPATHY
     Dates: start: 20120409
  2. ZOLOFT [Concomitant]
     Indication: ANXIETY
     Dosage: 75MG DAILY

REACTIONS (2)
  - Injection site urticaria [Not Recovered/Not Resolved]
  - Headache [Recovered/Resolved]
